FAERS Safety Report 11131205 (Version 1)
Quarter: 2015Q2

REPORT INFORMATION
  Report Type: Spontaneous
  Country: US (occurrence: None)
  Receive Date: 20150521
  Receipt Date: 20150521
  Transmission Date: 20150821
  Serious: No
  Sender: FDA-Public Use
  Company Number: None

PATIENT
  Age: 31 Year
  Sex: Female
  Weight: 74.84 kg

DRUGS (2)
  1. BUSPAR [Suspect]
     Active Substance: BUSPIRONE HYDROCHLORIDE
     Indication: ANXIETY DISORDER
     Route: 048
     Dates: start: 20150513, end: 20150518
  2. SHAKEOLOGY [Concomitant]

REACTIONS (4)
  - Paraesthesia [None]
  - Paraesthesia oral [None]
  - Restless legs syndrome [None]
  - Dizziness [None]

NARRATIVE: CASE EVENT DATE: 20150517
